FAERS Safety Report 6591232-5 (Version None)
Quarter: 2010Q1

REPORT INFORMATION
  Report Type: 
  Country: None (occurrence: None)
  Receive Date: 20100219
  Receipt Date: 20100212
  Transmission Date: 20100710
  Serious: Yes (Hospitalization)
  Sender: FDA-Public Use
  Company Number: PHHO2010GB02514

PATIENT
  Sex: Female

DRUGS (1)
  1. AFINITOR [Suspect]
     Indication: METASTATIC RENAL CELL CARCINOMA
     Dosage: 10MGS
     Route: 048
     Dates: start: 20090702, end: 20100210

REACTIONS (3)
  - DIARRHOEA [None]
  - HAEMATEMESIS [None]
  - VOMITING [None]
